FAERS Safety Report 4368769-2 (Version None)
Quarter: 2004Q2

REPORT INFORMATION
  Report Type: 
  Country: None (occurrence: None)
  Receive Date: 20040525
  Receipt Date: 20040514
  Transmission Date: 20050107
  Serious: Yes (Hospitalization)
  Sender: FDA-Public Use
  Company Number: 2004AP02539

PATIENT
  Age: 30 Year
  Sex: Female
  Weight: 60 kg

DRUGS (2)
  1. MARCAINE [Suspect]
     Indication: SPINAL ANAESTHESIA
     Dosage: 2 ML ONCE IT
     Route: 039
     Dates: start: 20040104, end: 20040104
  2. MORPHINE [Suspect]
     Indication: SPINAL ANAESTHESIA
     Dosage: 0.3 MG DAILY IT
     Route: 037
     Dates: start: 20040104, end: 20040104

REACTIONS (9)
  - ANAESTHETIC COMPLICATION [None]
  - BRADYCARDIA [None]
  - CAESAREAN SECTION [None]
  - CONVULSION [None]
  - CYANOSIS [None]
  - GAZE PALSY [None]
  - HYPOTENSION [None]
  - LOSS OF CONSCIOUSNESS [None]
  - PROCEDURAL COMPLICATION [None]
